FAERS Safety Report 15251893 (Version 1)
Quarter: 2018Q4

REPORT INFORMATION
  Report Type: Spontaneous
  Country: US (occurrence: US)
  Receive Date: 20180807
  Receipt Date: 20180807
  Transmission Date: 20190204
  Serious: Yes (Hospitalization)
  Sender: FDA-Public Use
  Company Number: US-SUVEN LIFE SCIENCES LTD.-2018SUV00002

PATIENT
  Age: 35 Year
  Sex: Male

DRUGS (1)
  1. MALATHION. [Suspect]
     Active Substance: MALATHION
     Indication: SOMATIC DELUSION
     Route: 061

REACTIONS (4)
  - Chemical poisoning [Recovered/Resolved]
  - Overdose [Recovered/Resolved]
  - Vomiting [Recovered/Resolved]
  - Blood pressure increased [Recovered/Resolved]
